FAERS Safety Report 7546975-3 (Version None)
Quarter: 2011Q2

REPORT INFORMATION
  Report Type: 
  Country: None (occurrence: None)
  Receive Date: 20110607
  Receipt Date: 20110531
  Transmission Date: 20111010
  Serious: Yes (Hospitalization)
  Sender: FDA-Public Use
  Company Number: 2009SP021070

PATIENT
  Age: 27 Year
  Sex: Female
  Weight: 86.637 kg

DRUGS (3)
  1. NUVARING [Suspect]
     Indication: CONTRACEPTION
     Dates: start: 20050501, end: 20060501
  2. AMITRIPTYLINE HCL [Concomitant]
  3. NEURONTIN [Concomitant]

REACTIONS (16)
  - ACTIVITIES OF DAILY LIVING IMPAIRED [None]
  - DEEP VEIN THROMBOSIS [None]
  - PREGNANCY [None]
  - PERIPHERAL ARTERIAL OCCLUSIVE DISEASE [None]
  - PROTEIN S DEFICIENCY [None]
  - HYPERCOAGULATION [None]
  - DRUG EXPOSURE DURING PREGNANCY [None]
  - PAIN [None]
  - ANXIETY [None]
  - PRODUCT QUALITY ISSUE [None]
  - MENTAL DISORDER [None]
  - ANAEMIA [None]
  - IMMINENT ABORTION [None]
  - RETAINED PLACENTA OR MEMBRANES [None]
  - ACUTE MYOCARDIAL INFARCTION [None]
  - ECTOPIC PREGNANCY [None]
